FAERS Safety Report 7872071 (Version 6)
Quarter: 2013Q3

REPORT INFORMATION
  Report Type: Report from Study
  Country: IE (occurrence: IE)
  Receive Date: 20110325
  Receipt Date: 20130906
  Transmission Date: 20140515
  Serious: Yes (Other)
  Sender: FDA-Public Use
  Company Number: PHHO2011IE04678

PATIENT
  Age: 77 Year
  Sex: Male
  Weight: 92.2 kg

DRUGS (11)
  1. ALISKIREN [Suspect]
     Indication: CARDIOVASCULAR DISORDER
     Dosage: 300 MG, UNK
     Route: 048
     Dates: end: 20110309
  2. NO TREATMENT RECEIVED [Suspect]
     Indication: CARDIOVASCULAR DISORDER
     Dosage: ACTIVE RUN-IN PHASE
  3. ESIDREX [Suspect]
     Indication: CARDIOVASCULAR DISORDER
     Dosage: 25 MG, UNK
     Route: 048
     Dates: end: 20110309
  4. ASA [Concomitant]
  5. ATENOLOL [Concomitant]
  6. ATORVASTATIN [Concomitant]
  7. INSULIN [Concomitant]
  8. PERINDOPRIL [Concomitant]
  9. TICLOPIDINE [Concomitant]
  10. CLOPIDOGREL [Concomitant]
  11. WARFARIN [Concomitant]

REACTIONS (4)
  - Drug intolerance [Recovered/Resolved]
  - Diarrhoea [Recovered/Resolved]
  - Abdominal pain [Recovered/Resolved]
  - Dizziness [Recovered/Resolved]
